FAERS Safety Report 6253683-8 (Version None)
Quarter: 2009Q2

REPORT INFORMATION
  Report Type: 
  Country: None (occurrence: None)
  Receive Date: 20090630
  Receipt Date: 20090622
  Transmission Date: 20091009
  Serious: Yes (Death, Other)
  Sender: FDA-Public Use
  Company Number: 2009US002537

PATIENT
  Age: 27 Year
  Sex: Male

DRUGS (4)
  1. PROGRAF [Suspect]
     Indication: RENAL AND PANCREAS TRANSPLANT
     Dosage: 1 MG, BID; 0.5 MG, BID
  2. ATGAM [Suspect]
     Indication: RENAL AND PANCREAS TRANSPLANT
  3. MYCOPHENOLATE MOFETIL [Suspect]
     Indication: RENAL AND PANCREAS TRANSPLANT
     Dosage: 500 MG, BID
  4. PREDNISONE TAB [Suspect]
     Indication: RENAL AND PANCREAS TRANSPLANT
     Dosage: 10 MG, UID/QD

REACTIONS (3)
  - LYMPHOPROLIFERATIVE DISORDER [None]
  - SEPSIS [None]
  - TRANSPLANT REJECTION [None]
